FAERS Safety Report 10196532 (Version 1)
Quarter: 2014Q2

REPORT INFORMATION
  Report Type: Spontaneous
  Country: US (occurrence: None)
  Receive Date: 20140523
  Receipt Date: 20140523
  Transmission Date: 20141212
  Serious: Yes (Hospitalization)
  Sender: FDA-Public Use
  Company Number: None

PATIENT
  Age: 85 Year
  Sex: Female

DRUGS (2)
  1. FORTEO [Suspect]
     Indication: BONE DISORDER
     Route: 058
     Dates: start: 20130919
  2. FORTEO [Suspect]
     Indication: CHONDROPATHY
     Route: 058
     Dates: start: 20130919

REACTIONS (1)
  - Transient ischaemic attack [None]
